FAERS Safety Report 6913508-1 (Version None)
Quarter: 2010Q3

REPORT INFORMATION
  Report Type: 
  Country: None (occurrence: None)
  Receive Date: 20100809
  Receipt Date: 20100729
  Transmission Date: 20110219
  Serious: Yes (Hospitalization)
  Sender: FDA-Public Use
  Company Number: PT-SANOFI-AVENTIS-2010SA044562

PATIENT
  Age: 80 Year
  Sex: Male

DRUGS (1)
  1. ELIGARD [Suspect]
     Indication: PROSTATE CANCER
     Route: 058
     Dates: start: 20070124

REACTIONS (1)
  - OSTEOPOROSIS [None]
